FAERS Safety Report 4355054-8 (Version None)
Quarter: 2004Q2

REPORT INFORMATION
  Report Type: 
  Country: None (occurrence: None)
  Receive Date: 20040504
  Receipt Date: 20040426
  Transmission Date: 20050107
  Serious: Yes (Disabling)
  Sender: FDA-Public Use
  Company Number: 205923

PATIENT
  Age: 49 Year
  Sex: Female
  Weight: 76.2 kg

DRUGS (13)
  1. XOLAIR [Suspect]
     Indication: ASTHMA
     Dosage: 150 MG, Q4W
     Dates: start: 20040115, end: 20040330
  2. ASPIRIN [Concomitant]
  3. NASACORT [Concomitant]
  4. ALLEGRA [Concomitant]
  5. SYNTHROID [Concomitant]
  6. XANAX [Concomitant]
  7. PATANOL [Concomitant]
  8. SINGULAIR [Concomitant]
  9. ADVAIR (SALMETEROL XINAFOATE, FLUTICASONE PROPIONATE) [Concomitant]
  10. PROTONIX [Concomitant]
  11. CARAFATE [Concomitant]
  12. MEDROL [Concomitant]
  13. HORMONE REPLACEMENT THERAPY (UNK INGREDIENTS) (HORMONES NOS) [Concomitant]

REACTIONS (15)
  - ASTHENIA [None]
  - DYSARTHRIA [None]
  - FEELING ABNORMAL [None]
  - FLUSHING [None]
  - HAEMOPTYSIS [None]
  - HEADACHE [None]
  - MIGRAINE [None]
  - MUSCLE TWITCHING [None]
  - OEDEMA PERIPHERAL [None]
  - OROPHARYNGEAL SWELLING [None]
  - PARAESTHESIA [None]
  - SPEECH DISORDER [None]
  - SWOLLEN TONGUE [None]
  - TRANSIENT ISCHAEMIC ATTACK [None]
  - VOMITING [None]
